FAERS Safety Report 7405713-5 (Version None)
Quarter: 2011Q2

REPORT INFORMATION
  Report Type: 
  Country: None (occurrence: None)
  Receive Date: 20110411
  Receipt Date: 20110406
  Transmission Date: 20111010
  Serious: Yes (Other)
  Sender: FDA-Public Use
  Company Number: JP-GENZYME-FLUD-1000911

PATIENT

DRUGS (3)
  1. FLUDARA [Suspect]
     Indication: CORD BLOOD TRANSPLANT THERAPY
     Dosage: UNK
     Route: 065
  2. TACROLIMUS [Concomitant]
     Indication: PROPHYLAXIS AGAINST GRAFT VERSUS HOST DISEASE
     Route: 065
  3. FLUDARA [Suspect]
     Indication: ACUTE LEUKAEMIA

REACTIONS (5)
  - MUCOSAL INFLAMMATION [None]
  - VENOOCCLUSIVE LIVER DISEASE [None]
  - VIRAL INFECTION [None]
  - BACTERIAL INFECTION [None]
  - PAIN OF SKIN [None]
